FAERS Safety Report 8619973-6 (Version None)
Quarter: 2012Q3

REPORT INFORMATION
  Report Type: 
  Country: None (occurrence: None)
  Receive Date: 20120824
  Receipt Date: 20120815
  Transmission Date: 20120928
  Serious: Yes (Hospitalization, Other)
  Sender: FDA-Public Use
  Company Number: MX-ELI_LILLY_AND_COMPANY-MX201208002844

PATIENT
  Age: 57 Year
  Sex: Female
  Weight: 134.97 kg

DRUGS (10)
  1. ACETYLSALICYLIC ACID W/CAFFEINE [Concomitant]
  2. AKINETON [Concomitant]
  3. ZYPREXA [Suspect]
     Dosage: UNK, UNKNOWN
     Dates: start: 20100101
  4. RISPERDAL [Concomitant]
  5. TRAMADOL HCL [Concomitant]
  6. ZYPREXA [Suspect]
     Dosage: 10 MG, UNK
  7. ACETAMINOPHEN [Concomitant]
  8. PRADAXA [Concomitant]
  9. OMEPRAZOLE [Concomitant]
  10. ZYPREXA [Suspect]
     Indication: SCHIZOPHRENIA
     Dosage: 2.5 MG, QD
     Route: 048
     Dates: start: 19970101, end: 20040101

REACTIONS (5)
  - HOSPITALISATION [None]
  - WRONG TECHNIQUE IN DRUG USAGE PROCESS [None]
  - WEIGHT INCREASED [None]
  - RESTLESSNESS [None]
  - DRUG DEPENDENCE [None]
